FAERS Safety Report 10223229 (Version 1)
Quarter: 2014Q2

REPORT INFORMATION
  Report Type: Report from Study
  Country: GB (occurrence: GB)
  Receive Date: 20140609
  Receipt Date: 20140609
  Transmission Date: 20141212
  Serious: Yes (Hospitalization)
  Sender: FDA-Public Use
  Company Number: GB-BRISTOL-MYERS SQUIBB COMPANY-20871414

PATIENT
  Age: 65 Year
  Sex: Male

DRUGS (2)
  1. YERVOY [Suspect]
     Indication: METASTATIC MALIGNANT MELANOMA
     Dosage: 258MG. TOTAL DAILY DOSE: 3
     Route: 042
     Dates: start: 20140213, end: 20140325
  2. IBUPROFEN [Concomitant]
     Dates: start: 20131001

REACTIONS (2)
  - Diarrhoea [Recovered/Resolved]
  - Pseudomembranous colitis [Recovered/Resolved]
